FAERS Safety Report 19838111 (Version 2)
Quarter: 2021Q3

REPORT INFORMATION
  Report Type: Spontaneous
  Country: US (occurrence: US)
  Receive Date: 20210916
  Receipt Date: 20210930
  Transmission Date: 20211014
  Serious: No
  Sender: FDA-Public Use
  Company Number: US-LUPIN PHARMACEUTICALS INC.-2021-16905

PATIENT
  Age: 78 Year
  Sex: Female

DRUGS (1)
  1. AMLODIPINE BESYLATE TABLETS USP, 2.5 MG [Suspect]
     Active Substance: AMLODIPINE BESYLATE
     Indication: BLOOD PRESSURE INCREASED
     Dosage: 2.5 MILLIGRAM, QD
     Route: 048
     Dates: start: 202108

REACTIONS (5)
  - Swelling of eyelid [Not Recovered/Not Resolved]
  - Eye swelling [Not Recovered/Not Resolved]
  - Dry skin [Not Recovered/Not Resolved]
  - Eyelid disorder [Not Recovered/Not Resolved]
  - Eyelid skin dryness [Not Recovered/Not Resolved]

NARRATIVE: CASE EVENT DATE: 202108
